FAERS Safety Report 25372537 (Version 3)
Quarter: 2025Q2

REPORT INFORMATION
  Report Type: Spontaneous
  Country: US (occurrence: US)
  Receive Date: 20250529
  Receipt Date: 20250616
  Transmission Date: 20250716
  Serious: Yes (Other)
  Sender: AMGEN
  Company Number: US-AMGEN-USASP2025102012

PATIENT
  Age: 61 Year
  Sex: Female

DRUGS (6)
  1. REPATHA [Suspect]
     Active Substance: EVOLOCUMAB
     Indication: Cardiac disorder
     Dosage: 140 MILLIGRAM PER MILLILITRE, Q2WK (START DATE: YEARS, AT LEAST 4 YEARS)
     Route: 065
  2. REPATHA [Suspect]
     Active Substance: EVOLOCUMAB
     Indication: Blood cholesterol abnormal
     Dosage: 140 MILLIGRAM PER MILLILITRE, Q2WK
     Route: 065
  3. ISOSORBIDE [Concomitant]
     Active Substance: ISOSORBIDE
     Indication: Cardiac disorder
  4. ISOSORBIDE [Concomitant]
     Active Substance: ISOSORBIDE
     Indication: Blood cholesterol abnormal
  5. PLAVIX [Concomitant]
     Active Substance: CLOPIDOGREL BISULFATE
     Indication: Blood cholesterol abnormal
     Route: 065
  6. PLAVIX [Concomitant]
     Active Substance: CLOPIDOGREL BISULFATE
     Indication: Cardiac disorder

REACTIONS (6)
  - Rheumatoid arthritis [Unknown]
  - Autoimmune disorder [Unknown]
  - Pruritus [Not Recovered/Not Resolved]
  - Device difficult to use [Unknown]
  - Injection site irritation [Unknown]
  - Antinuclear antibody positive [Unknown]

NARRATIVE: CASE EVENT DATE: 20250522
